FAERS Safety Report 4838000-X (Version None)
Quarter: 2005Q4

REPORT INFORMATION
  Report Type: 
  Country: None (occurrence: None)
  Receive Date: 20051123
  Receipt Date: 20051123
  Transmission Date: 20060501
  Serious: No
  Sender: FDA-Public Use
  Company Number: None

PATIENT
  Age: 87 Year
  Sex: Female

DRUGS (3)
  1. RESTASIS [Suspect]
     Indication: KERATOCONJUNCTIVITIS SICCA
     Dosage: 1 DROP EACH EYE BID
     Route: 047
     Dates: start: 20050901
  2. METHADONE [Concomitant]
  3. PRILOSEC [Concomitant]

REACTIONS (1)
  - COUGH [None]
